FAERS Safety Report 6436228-9 (Version None)
Quarter: 2009Q4

REPORT INFORMATION
  Report Type: 
  Country: None (occurrence: None)
  Receive Date: 20091111
  Receipt Date: 20091105
  Transmission Date: 20100525
  Serious: Yes (Hospitalization, Congenital Anomaly)
  Sender: FDA-Public Use
  Company Number: A0644721A

PATIENT
  Sex: Male
  Weight: 3.5 kg

DRUGS (6)
  1. PAXIL [Suspect]
     Indication: DRUG USE FOR UNKNOWN INDICATION
     Dosage: 20MG PER DAY
  2. PAXIL CR [Suspect]
     Indication: OBSESSIVE-COMPULSIVE DISORDER
     Dosage: 25MG PER DAY
     Dates: start: 20030604, end: 20031001
  3. LASIX [Concomitant]
     Indication: CARDIAC DISORDER
     Dosage: .3ML TWICE PER DAY
     Dates: start: 20040101, end: 20050101
  4. BABY ASPIRIN [Concomitant]
     Indication: CARDIAC DISORDER
     Dosage: .25TAB AT NIGHT
     Dates: start: 20040101
  5. KEFLEX [Concomitant]
     Indication: WOUND INFECTION
     Dosage: 1TSP FOUR TIMES PER DAY
     Dates: start: 20040101
  6. VITAMIN TAB [Concomitant]

REACTIONS (18)
  - BLOOD PH DECREASED [None]
  - CYANOSIS [None]
  - DEEP VEIN THROMBOSIS [None]
  - DIARRHOEA HAEMORRHAGIC [None]
  - DRUG EXPOSURE DURING PREGNANCY [None]
  - FALLOT'S TETRALOGY [None]
  - HEART DISEASE CONGENITAL [None]
  - HYPOXIA [None]
  - MATERNAL DRUGS AFFECTING FOETUS [None]
  - NEONATAL RESPIRATORY DISTRESS SYNDROME [None]
  - PATENT DUCTUS ARTERIOSUS [None]
  - PCO2 INCREASED [None]
  - PO2 DECREASED [None]
  - RESPIRATORY DEPTH DECREASED [None]
  - RESPIRATORY DISTRESS [None]
  - TRANSPOSITION OF THE GREAT VESSELS [None]
  - VENTRICULAR SEPTAL DEFECT [None]
  - WOUND INFECTION [None]
